FAERS Safety Report 9525052 (Version 2)
Quarter: 2013Q3

REPORT INFORMATION
  Report Type: Report from Study
  Country: JP (occurrence: JP)
  Receive Date: 20130916
  Receipt Date: 20130924
  Transmission Date: 20140515
  Serious: Yes (Hospitalization)
  Sender: FDA-Public Use
  Company Number: JP-CELGENEUS-087-21660-13091684

PATIENT
  Age: 64 Year
  Sex: Male
  Weight: 76 kg

DRUGS (21)
  1. ABRAXANE [Suspect]
     Indication: GASTRIC CANCER
     Dosage: 486 MILLIGRAM
     Route: 041
     Dates: start: 20130719
  2. TS-1 [Suspect]
     Indication: GASTRIC CANCER
     Dosage: 120 MILLIGRAM
     Route: 048
     Dates: start: 20130719
  3. TS-1 [Suspect]
     Dosage: 120 MILLIGRAM
     Route: 048
     Dates: start: 20130830, end: 20130904
  4. FLUID [Concomitant]
     Indication: PRODUCT USED FOR UNKNOWN INDICATION
     Dosage: 500-1500 ML
     Route: 065
     Dates: start: 20130906
  5. METGLUCO [Concomitant]
     Indication: DIABETES MELLITUS
     Dosage: 250 MILLIGRAM
     Route: 048
     Dates: start: 20130906
  6. ACTOS [Concomitant]
     Indication: DIABETES MELLITUS
     Dosage: 7.5 MILLIGRAM
     Route: 048
     Dates: start: 20130906
  7. MICARDIS [Concomitant]
     Indication: HYPERTENSION
     Dosage: 40 MILLIGRAM
     Route: 048
  8. DOXAZOSIN [Concomitant]
     Indication: HYPERTENSION
     Dosage: 2 MILLIGRAM
     Route: 048
  9. BRONUCK [Concomitant]
     Indication: CATARACT
     Route: 065
  10. LOXOPROFEN [Concomitant]
     Indication: CANCER PAIN
     Dosage: 60 MILLIGRAM
     Route: 048
     Dates: start: 201307
  11. PURSENNID [Concomitant]
     Indication: CONSTIPATION
     Dosage: 24 MILLIGRAM
     Route: 048
     Dates: start: 20130731
  12. MAGMITT [Concomitant]
     Indication: CONSTIPATION
     Dosage: 990 MILLIGRAM
     Route: 048
     Dates: start: 20130805
  13. SHINLUCK [Concomitant]
     Indication: CONSTIPATION
     Route: 048
     Dates: start: 20130805
  14. FERO-GRADUMET [Concomitant]
     Indication: ANAEMIA
     Dosage: 210 MILLIGRAM
     Route: 048
     Dates: start: 20130722, end: 20130906
  15. NEXIUM [Concomitant]
     Indication: GASTRITIS PROPHYLAXIS
     Dosage: 20 MILLIGRAM
     Route: 048
     Dates: start: 20130905, end: 20130906
  16. CRAVIT [Concomitant]
     Indication: INFECTION PROPHYLAXIS
     Dosage: 500 MILLIGRAM
     Route: 048
     Dates: start: 20130905, end: 20130906
  17. AZUNOL [Concomitant]
     Indication: MUCOSAL INFLAMMATION
     Dosage: 500 MILLIGRAM
     Route: 048
     Dates: start: 20130726
  18. LIVALO [Concomitant]
     Indication: HYPERLIPIDAEMIA
     Dosage: 1 MILLIGRAM
     Route: 048
     Dates: start: 20130906
  19. SENNAL [Concomitant]
     Indication: CONSTIPATION
     Dosage: 24 MILLIGRAM
     Route: 048
     Dates: start: 20130731
  20. G-CSF [Concomitant]
     Indication: PRODUCT USED FOR UNKNOWN INDICATION
     Route: 065
     Dates: start: 20130907
  21. CEFEPIME DIHYDROCHLORIDE HYDRATE [Concomitant]
     Indication: PRODUCT USED FOR UNKNOWN INDICATION
     Dosage: 1-2
     Route: 065
     Dates: start: 20130906, end: 20130910

REACTIONS (1)
  - Decreased appetite [Recovered/Resolved]
